FAERS Safety Report 12382230 (Version 1)
Quarter: 2016Q2

REPORT INFORMATION
  Report Type: Spontaneous
  Country: CA (occurrence: CA)
  Receive Date: 20160518
  Receipt Date: 20160518
  Transmission Date: 20160815
  Serious: Yes (Other)
  Sender: FDA-Public Use
  Company Number: CA-CONCORDIA PHARMACEUTICALS INC.-CO-PL-CA-2016-223

PATIENT
  Sex: Female

DRUGS (8)
  1. GOLD SODIUM THIOMALATE [Suspect]
     Active Substance: GOLD SODIUM THIOMALATE
     Indication: PRODUCT USED FOR UNKNOWN INDICATION
     Route: 065
  2. ENBREL [Concomitant]
     Active Substance: ETANERCEPT
     Dates: start: 2003, end: 2004
  3. REMICADE [Concomitant]
     Active Substance: INFLIXIMAB
     Dates: start: 2004, end: 2006
  4. CELEBREX [Concomitant]
     Active Substance: CELECOXIB
  5. METHOTREXATE [Concomitant]
     Active Substance: METHOTREXATE
     Dates: start: 2005, end: 2006
  6. RELAFEN [Concomitant]
     Active Substance: NABUMETONE
  7. HUMIRA [Concomitant]
     Active Substance: ADALIMUMAB
     Dates: start: 2003, end: 2004
  8. PLAQUENIL [Suspect]
     Active Substance: HYDROXYCHLOROQUINE SULFATE
     Indication: PRODUCT USED FOR UNKNOWN INDICATION
     Route: 065

REACTIONS (4)
  - Arthropathy [Unknown]
  - Pain [Unknown]
  - Rheumatoid arthritis [Unknown]
  - Drug hypersensitivity [Unknown]
